FAERS Safety Report 14514471 (Version 2)
Quarter: 2018Q2

REPORT INFORMATION
  Report Type: Spontaneous
  Country: IT (occurrence: IT)
  Receive Date: 20180209
  Receipt Date: 20180509
  Transmission Date: 20180711
  Serious: Yes (Hospitalization)
  Sender: FDA-Public Use
  Company Number: IT-TEVA-2018-IT-855600

PATIENT
  Age: 63 Year
  Sex: Female

DRUGS (2)
  1. METHOTREXATE. [Suspect]
     Active Substance: METHOTREXATE
     Indication: ARTHRITIS
     Dosage: 10 MG/WEEK
     Route: 065
     Dates: start: 2014
  2. METHOTREXATE. [Suspect]
     Active Substance: METHOTREXATE
     Dosage: 15MG/WEEK
     Route: 065

REACTIONS (4)
  - Immune reconstitution inflammatory syndrome [Recovering/Resolving]
  - Condition aggravated [Recovering/Resolving]
  - Infection masked [Recovering/Resolving]
  - Whipple^s disease [Recovering/Resolving]

NARRATIVE: CASE EVENT DATE: 2015
